FAERS Safety Report 6656829-2 (Version None)
Quarter: 2010Q1

REPORT INFORMATION
  Report Type: 
  Country: None (occurrence: None)
  Receive Date: 20100325
  Receipt Date: 20100310
  Transmission Date: 20100710
  Serious: Yes (Other)
  Sender: FDA-Public Use
  Company Number: AUR-APL-2010-00834

PATIENT
  Sex: Female

DRUGS (5)
  1. METFORMIN FILM-COATED TABLET [Suspect]
     Dosage: 1000MG, BID, UNK
  2. PREGABALIN CAPSULE,HARD (LYRICA - PFIZER) [Suspect]
     Dosage: 50MG, BID, UNK
     Dates: start: 20100205
  3. CYMBALTA [Suspect]
     Dates: start: 20100205
  4. DIOVAN HCT [Suspect]
     Dosage: 116/12.5 DAILY
     Dates: start: 20100205
  5. TRICOR [Suspect]
     Dates: start: 20100205

REACTIONS (5)
  - BLOOD PRESSURE INCREASED [None]
  - DIZZINESS [None]
  - DRUG INEFFECTIVE [None]
  - OEDEMA [None]
  - WEIGHT INCREASED [None]
